FAERS Safety Report 11682464 (Version 41)
Quarter: 2018Q4

REPORT INFORMATION
  Report Type: Report from Study
  Country: CA (occurrence: CA)
  Receive Date: 20151029
  Receipt Date: 20181018
  Transmission Date: 20190204
  Serious: Yes (Hospitalization, Other)
  Sender: FDA-Public Use
  Company Number: CA-SA-2014SA091667

PATIENT
  Age: 30 Year
  Sex: Female
  Weight: 53.7 kg

DRUGS (18)
  1. ZANTAC [Concomitant]
     Active Substance: RANITIDINE HYDROCHLORIDE
     Indication: PREMEDICATION
     Dosage: 150 MG,BID
     Route: 048
     Dates: start: 20140707
  2. GILENYA [Suspect]
     Active Substance: FINGOLIMOD HYDROCHLORIDE
     Dosage: UNK UNK,UNK
     Route: 065
  3. DITROPAN [Concomitant]
     Active Substance: OXYBUTYNIN CHLORIDE
     Indication: HYPERTONIC BLADDER
     Dosage: 5 MG,UNK
     Route: 048
  4. ZOPICLONE [Concomitant]
     Active Substance: ZOPICLONE
     Indication: INSOMNIA
     Dosage: 7.5 MG,UNK
     Route: 048
  5. CIPRO [Concomitant]
     Active Substance: CIPROFLOXACIN HYDROCHLORIDE
     Indication: URINARY TRACT INFECTION
     Dosage: UNK
     Route: 048
     Dates: start: 20180619, end: 20180703
  6. ERGOCALCIFEROL. [Concomitant]
     Active Substance: ERGOCALCIFEROL
     Indication: MULTIPLE SCLEROSIS
     Dosage: 10000 DF,QW
     Route: 048
  7. PREDNISONE. [Concomitant]
     Active Substance: PREDNISONE
     Indication: STILL^S DISEASE
     Dosage: UNK UNK,UNK
     Route: 065
  8. SEPTRA [Suspect]
     Active Substance: SULFAMETHOXAZOLE\TRIMETHOPRIM
     Dosage: UNK UNK,UNK
     Route: 065
  9. REMERON [Concomitant]
     Active Substance: MIRTAZAPINE
     Indication: ANTIDEPRESSANT THERAPY
     Dosage: 30 MG,UNK
     Route: 048
  10. METHOTREXATE. [Concomitant]
     Active Substance: METHOTREXATE
     Indication: STILL^S DISEASE
     Dosage: UNK UNK,UNK
     Route: 065
  11. DIMENHYDRINATE. [Concomitant]
     Active Substance: DIMENHYDRINATE
     Indication: PREMEDICATION
     Dosage: 50 MG,UNK
     Route: 048
     Dates: start: 20140707
  12. PARACETAMOL [Concomitant]
     Active Substance: ACETAMINOPHEN
     Indication: PREMEDICATION
     Dosage: 650 MG,UNK
     Route: 048
     Dates: start: 20140707
  13. SOLU-MEDROL [Suspect]
     Active Substance: METHYLPREDNISOLONE SODIUM SUCCINATE
     Indication: MULTIPLE SCLEROSIS
     Dosage: 1 G,UNK
     Route: 042
     Dates: start: 20140707, end: 20140707
  14. DIPHENHYDRAMINE. [Concomitant]
     Active Substance: DIPHENHYDRAMINE
     Indication: PREMEDICATION
     Dosage: 50 MG,UNK
     Route: 048
     Dates: start: 20140707
  15. ACICLOVIR [Concomitant]
     Active Substance: ACYCLOVIR
     Indication: PROPHYLAXIS
     Dosage: 200 MG,BID
     Route: 048
     Dates: start: 20140707
  16. ALEMTUZUMAB [Suspect]
     Active Substance: ALEMTUZUMAB
     Dosage: 12 MG,QD
     Route: 041
     Dates: start: 20140707, end: 20140711
  17. PARACETAMOL [Concomitant]
     Active Substance: ACETAMINOPHEN
     Indication: HEADACHE
  18. MEFENAMIC ACID. [Concomitant]
     Active Substance: MEFENAMIC ACID
     Dosage: UNK UNK,PRN
     Route: 048
     Dates: start: 20140707

REACTIONS (76)
  - Pleuritic pain [Unknown]
  - Urine odour abnormal [Recovered/Resolved]
  - Blood test abnormal [Not Recovered/Not Resolved]
  - C-reactive protein increased [Not Recovered/Not Resolved]
  - Citric acid urine increased [Recovered/Resolved]
  - Chromaturia [Recovered/Resolved]
  - Monocyte percentage increased [Not Recovered/Not Resolved]
  - Granulocyte count increased [Not Recovered/Not Resolved]
  - White blood cell count decreased [Recovered/Resolved]
  - Bacterial test [Not Recovered/Not Resolved]
  - Familial haemophagocytic lymphohistiocytosis [Not Recovered/Not Resolved]
  - Oesophageal candidiasis [Unknown]
  - White blood cells urine positive [Recovered/Resolved]
  - Red cell distribution width increased [Recovered/Resolved]
  - Central nervous system lesion [Unknown]
  - Laboratory test abnormal [Recovered/Resolved]
  - Neutrophil percentage increased [Recovered/Resolved]
  - Haematocrit increased [Recovered/Resolved]
  - Dizziness [Recovered/Resolved]
  - Enterococcus test positive [Unknown]
  - Arthralgia [Unknown]
  - Incontinence [Recovered/Resolved]
  - Escherichia urinary tract infection [Recovered/Resolved]
  - Haematocrit decreased [Recovered/Resolved]
  - Leukocyturia [Recovered/Resolved]
  - Urinary incontinence [Unknown]
  - Haemoglobin decreased [Recovered/Resolved]
  - Lymphopenia [Recovered/Resolved]
  - Lymphocyte percentage decreased [Not Recovered/Not Resolved]
  - Disease progression [Unknown]
  - Red blood cells urine [Not Recovered/Not Resolved]
  - Urinary tract infection [Not Recovered/Not Resolved]
  - Visual field defect [Recovered/Resolved]
  - Pyrexia [Recovered/Resolved]
  - C-reactive protein increased [Recovered/Resolved]
  - Eosinophil count increased [Recovered/Resolved]
  - Neutrophil count increased [Recovered/Resolved]
  - Urinary sediment present [Not Recovered/Not Resolved]
  - Urine abnormality [Not Recovered/Not Resolved]
  - Scan abnormal [Unknown]
  - Lymphocyte count decreased [Not Recovered/Not Resolved]
  - Micturition urgency [Not Recovered/Not Resolved]
  - Pyrexia [Recovered/Resolved]
  - Pleural effusion [Unknown]
  - Myalgia [Unknown]
  - Dysuria [Recovered/Resolved]
  - Alanine aminotransferase increased [Recovering/Resolving]
  - Escherichia sepsis [Recovered/Resolved]
  - Blood thyroid stimulating hormone increased [Recovered/Resolved]
  - Mean cell haemoglobin concentration decreased [Recovered/Resolved]
  - Headache [Recovered/Resolved]
  - Bladder pain [Not Recovered/Not Resolved]
  - Oropharyngeal pain [Not Recovered/Not Resolved]
  - Rash maculo-papular [Unknown]
  - Urine analysis abnormal [Not Recovered/Not Resolved]
  - Lipaemic index score [Recovered/Resolved]
  - Haematocrit increased [Recovered/Resolved]
  - Hypersensitivity [Recovered/Resolved]
  - Hepatic enzyme increased [Unknown]
  - Crystal urine present [Not Recovered/Not Resolved]
  - Bacterial test [Not Recovered/Not Resolved]
  - Urinary casts [Unknown]
  - Back pain [Recovered/Resolved]
  - Protein urine [Not Recovered/Not Resolved]
  - Dysuria [Not Recovered/Not Resolved]
  - Pericarditis [Unknown]
  - Drug-induced liver injury [Recovered/Resolved]
  - Hepatocellular injury [Recovering/Resolving]
  - Pleural infection [Recovering/Resolving]
  - Urine analysis abnormal [Not Recovered/Not Resolved]
  - Mean cell haemoglobin decreased [Recovered/Resolved]
  - Granulocyte percentage [Not Recovered/Not Resolved]
  - Burning sensation [Unknown]
  - Infection [Unknown]
  - Insomnia [Recovered/Resolved]
  - Urine odour abnormal [Not Recovered/Not Resolved]

NARRATIVE: CASE EVENT DATE: 20140707
